FAERS Safety Report 10519300 (Version 3)
Quarter: 2014Q4

REPORT INFORMATION
  Report Type: Report from Study
  Country: US (occurrence: US)
  Receive Date: 20141015
  Receipt Date: 20141124
  Transmission Date: 20150528
  Serious: Yes (Hospitalization)
  Sender: FDA-Public Use
  Company Number: US-SA-2014SA139767

PATIENT
  Age: 68 Year
  Sex: Male
  Weight: 124 kg

DRUGS (15)
  1. LOSARTAN [Concomitant]
     Active Substance: LOSARTAN
     Indication: BLOOD PRESSURE
     Dates: start: 2004
  2. COZAAR [Concomitant]
     Active Substance: LOSARTAN POTASSIUM
  3. LANTUS [Suspect]
     Active Substance: INSULIN GLARGINE
     Indication: DIABETES MELLITUS
     Dosage: DOSE:136 UNIT(S)
     Route: 065
     Dates: start: 20020901
  4. OMEGA 3 [Concomitant]
     Active Substance: OMEGA-3 FATTY ACIDS
  5. LANTUS [Suspect]
     Active Substance: INSULIN GLARGINE
     Indication: DIABETES MELLITUS
     Dosage: DOSE:136 UNIT(S)
     Route: 065
     Dates: start: 20140827
  6. CARVEDILOL. [Concomitant]
     Active Substance: CARVEDILOL
     Indication: HEART RATE DECREASED
     Dates: start: 20140929
  7. BRILINTA [Concomitant]
     Active Substance: TICAGRELOR
     Indication: CARDIAC DISORDER
     Dates: start: 20140930
  8. POTASSIUM CHLORIDE. [Concomitant]
     Active Substance: POTASSIUM CHLORIDE
     Indication: BLOOD POTASSIUM DECREASED
     Dates: start: 20141010
  9. LASIX [Concomitant]
     Active Substance: FUROSEMIDE
     Indication: FLUID RETENTION
     Dates: start: 20141001
  10. VITAMIN D [Concomitant]
     Active Substance: CHOLECALCIFEROL
  11. METFORMIN [Concomitant]
     Active Substance: METFORMIN HYDROCHLORIDE
     Dosage: FREQUENCY: 1000MG; 11/2 TAB MORNING 1 AT DINNER
     Dates: start: 2004
  12. GLUCOSAMINE [Concomitant]
     Active Substance: GLUCOSAMINE
  13. FISH OIL [Concomitant]
     Active Substance: FISH OIL
  14. LIPITOR [Concomitant]
     Active Substance: ATORVASTATIN CALCIUM
     Indication: HYPERTENSION
     Dates: start: 2004
  15. ATORVASTATIN [Concomitant]
     Active Substance: ATORVASTATIN

REACTIONS (3)
  - Myocardial infarction [Recovered/Resolved]
  - Dyspnoea [Recovered/Resolved]
  - Blood glucose increased [Recovered/Resolved]

NARRATIVE: CASE EVENT DATE: 20140928
